FAERS Safety Report 4687036-0 (Version None)
Quarter: 2005Q2

REPORT INFORMATION
  Report Type: 
  Country: None (occurrence: None)
  Receive Date: 20050606
  Receipt Date: 20050524
  Transmission Date: 20051028
  Serious: Yes (Hospitalization, Other)
  Sender: FDA-Public Use
  Company Number: WAES 0505USA03282

PATIENT
  Age: 79 Year
  Sex: Female

DRUGS (3)
  1. FOSAMAX [Suspect]
     Indication: OSTEOPOROSIS
     Dosage: 5 MG/DAILY, PO
     Route: 048
     Dates: start: 20031129, end: 20040124
  2. METHYLCOBAL [Concomitant]
  3. OPALMON [Concomitant]

REACTIONS (1)
  - CEREBRAL INFARCTION [None]
